FAERS Safety Report 18200246 (Version 1)
Quarter: 2020Q3

REPORT INFORMATION
  Report Type: Spontaneous
  Country: US (occurrence: US)
  Receive Date: 20200827
  Receipt Date: 20200827
  Transmission Date: 20201103
  Serious: No
  Sender: FDA-Public Use
  Company Number: US-HIKMA PHARMACEUTICALS USA INC.-US-H14001-19-05433

PATIENT
  Sex: Female

DRUGS (2)
  1. MITIGARE [Suspect]
     Active Substance: COLCHICINE
     Indication: MORPHOEA
     Route: 065
  2. METHOTREXATE. [Suspect]
     Active Substance: METHOTREXATE
     Indication: MORPHOEA
     Route: 065

REACTIONS (1)
  - Off label use [Unknown]
